FAERS Safety Report 7971249-6 (Version None)
Quarter: 2011Q4

REPORT INFORMATION
  Report Type: 
  Country: None (occurrence: None)
  Receive Date: 20111212
  Receipt Date: 20101025
  Transmission Date: 20120403
  Serious: No
  Sender: FDA-Public Use
  Company Number: US-BRISTOL-MYERS SQUIBB COMPANY-15283401

PATIENT
  Age: 75 Year
  Sex: Female

DRUGS (11)
  1. OSCAL [Concomitant]
  2. ASPIRIN [Concomitant]
  3. VITAMIN B6 [Concomitant]
  4. LORAZEPAM [Concomitant]
  5. TRIAMTERENE [Concomitant]
  6. XELODA [Concomitant]
     Dosage: DOSAGE:14DAYS ON/7DAYS OFF
  7. CIPROFLOXACIN [Concomitant]
  8. MULTI-VITAMINS [Concomitant]
     Dosage: 1 DF= 8 UNIT NOS
  9. ZOMETA [Concomitant]
     Dosage: 1 DF:3.3 TO 3.5MG
     Route: 042
  10. IXEMPRA KIT [Suspect]
     Indication: BREAST CANCER METASTATIC
     Route: 042
     Dates: start: 20081117
  11. GABAPENTIN [Concomitant]

REACTIONS (2)
  - NO ADVERSE EVENT [None]
  - DRUG ADMINISTRATION ERROR [None]
